FAERS Safety Report 21895778 (Version 1)
Quarter: 2023Q1

REPORT INFORMATION
  Report Type: Spontaneous
  Country: CN (occurrence: CN)
  Receive Date: 20230123
  Receipt Date: 20230123
  Transmission Date: 20230417
  Serious: Yes (Hospitalization, Other)
  Sender: FDA-Public Use
  Company Number: None

PATIENT
  Age: 55 Year
  Sex: Female
  Weight: 71 kg

DRUGS (8)
  1. CYCLOPHOSPHAMIDE [Suspect]
     Active Substance: CYCLOPHOSPHAMIDE
     Indication: Chemotherapy
     Dosage: 1000 MG, Q14D, ST, DILUTED WITH 100 ML SODIUM CHLORIDE
     Route: 041
     Dates: start: 20221227, end: 20221227
  2. CYCLOPHOSPHAMIDE [Suspect]
     Active Substance: CYCLOPHOSPHAMIDE
     Indication: Breast cancer female
  3. SODIUM CHLORIDE [Suspect]
     Active Substance: SODIUM CHLORIDE
     Indication: Medication dilution
     Dosage: DOSAGE FORM: INJECTION, 100ML, Q14D, USED TO DILUTE 1000 MG CYCLOPHOSPHAMIDE
     Route: 041
     Dates: start: 20221227, end: 20221227
  4. DEXTROSE [Suspect]
     Active Substance: DEXTROSE
     Indication: Medication dilution
     Dosage: DOSAGE FORM: INJECTION, 100 ML, Q14D, USED TO DILUTE 100 MG PIRARUBICIN HYDROCHLORIDE
     Route: 041
     Dates: start: 20221227, end: 20221227
  5. PIRARUBICIN HYDROCHLORIDE [Suspect]
     Active Substance: PIRARUBICIN HYDROCHLORIDE
     Indication: Chemotherapy
     Dosage: 100 MG, Q14D, ST, DILUTED WITH 100 ML GLUCOSE
     Route: 041
     Dates: start: 20221227, end: 20221227
  6. PIRARUBICIN HYDROCHLORIDE [Suspect]
     Active Substance: PIRARUBICIN HYDROCHLORIDE
     Indication: Breast cancer female
  7. PEGYLATED RECOMBINANT HUMAN GRANULOCYTE COLONY-STIMULATING FACTOR [Concomitant]
     Indication: Prophylaxis
     Dosage: 6 MG, ST
     Route: 058
     Dates: start: 20221228
  8. Sheng xue bao [Concomitant]
     Indication: Prophylaxis
     Dosage: MIXTURE, 15 ML TID
     Route: 048
     Dates: start: 20221228

REACTIONS (2)
  - Myelosuppression [Recovered/Resolved]
  - Granulocytopenia [Recovered/Resolved]

NARRATIVE: CASE EVENT DATE: 20230103
